FAERS Safety Report 10947304 (Version 1)
Quarter: 2015Q1

REPORT INFORMATION
  Report Type: Spontaneous
  Country: CA (occurrence: CA)
  Receive Date: 20150323
  Receipt Date: 20150323
  Transmission Date: 20150721
  Serious: Yes (Hospitalization)
  Sender: FDA-Public Use
  Company Number: CA-TEVA-548781USA

PATIENT
  Age: 58 Year
  Sex: Male

DRUGS (2)
  1. CARBAMAZEPINE. [Suspect]
     Active Substance: CARBAMAZEPINE
     Indication: OVERDOSE
     Dosage: MORE THAN 14 G OF SUSTAINED-RELEASE CARBAMAZEPINE
     Route: 048
  2. LORAZEPAM. [Suspect]
     Active Substance: LORAZEPAM
     Indication: OVERDOSE
     Dosage: 60 MG
     Route: 048

REACTIONS (5)
  - Overdose [Recovering/Resolving]
  - Seizure [Recovering/Resolving]
  - Toxicity to various agents [Recovering/Resolving]
  - Stupor [Recovering/Resolving]
  - Ileus [Recovered/Resolved]
